FAERS Safety Report 20713917 (Version 1)
Quarter: 2022Q2

REPORT INFORMATION
  Report Type: Spontaneous
  Country: US (occurrence: US)
  Receive Date: 20220415
  Receipt Date: 20220415
  Transmission Date: 20220721
  Serious: No
  Sender: FDA-Public Use
  Company Number: US-BIOGEN-2022BI01112852

PATIENT
  Sex: Female

DRUGS (1)
  1. VUMERITY [Suspect]
     Active Substance: DIROXIMEL FUMARATE
     Indication: Multiple sclerosis
     Dosage: SHE WAS ON IT FOR ABOUT A MONTH
     Route: 065
     Dates: start: 2021, end: 2021

REACTIONS (1)
  - Drug hypersensitivity [Not Recovered/Not Resolved]
